FAERS Safety Report 10049691 (Version 2)
Quarter: 2014Q2

REPORT INFORMATION
  Report Type: Report from Study
  Country: CA (occurrence: CA)
  Receive Date: 20140401
  Receipt Date: 20140401
  Transmission Date: 20141212
  Serious: Yes (Death, Other)
  Sender: FDA-Public Use
  Company Number: PHHY2013CA088106

PATIENT
  Age: 55 Year
  Sex: Female

DRUGS (3)
  1. SANDOSTATIN LAR [Suspect]
     Indication: NEUROENDOCRINE CARCINOMA METASTATIC
     Dosage: 20 MG, EVERY FOUR WEEKS
     Route: 030
     Dates: start: 20130715
  2. SANDOSTATIN LAR [Suspect]
     Dosage: 20 MG, EVERY FOUR WEEKS
     Route: 030
     Dates: start: 20130812
  3. SANDOSTATIN LAR [Suspect]
     Dosage: 30 MG, EVERY FOUR WEEKS
     Route: 030

REACTIONS (7)
  - Death [Fatal]
  - Ascites [Unknown]
  - Cognitive disorder [Unknown]
  - Cancer pain [Unknown]
  - Vomiting [Unknown]
  - Diarrhoea [Unknown]
  - Nausea [Unknown]
